FAERS Safety Report 10204722 (Version 1)
Quarter: 2014Q2

REPORT INFORMATION
  Report Type: Spontaneous
  Country: US (occurrence: US)
  Receive Date: 20140529
  Receipt Date: 20140529
  Transmission Date: 20141212
  Serious: No
  Sender: FDA-Public Use
  Company Number: US-009507513-1405USA012931

PATIENT
  Sex: Female

DRUGS (1)
  1. DR. SCHOLL^S BLISTER DEFENSE ANTI-FRICTION STICK [Suspect]
     Indication: DISCOMFORT
     Dosage: UNK
     Route: 061
     Dates: start: 2013

REACTIONS (2)
  - General symptom [Unknown]
  - Therapeutic product ineffective [Unknown]
